FAERS Safety Report 17706859 (Version 1)
Quarter: 2020Q2

REPORT INFORMATION
  Report Type: Spontaneous
  Country: US (occurrence: US)
  Receive Date: 20200424
  Receipt Date: 20200424
  Transmission Date: 20200714
  Serious: Yes (Other)
  Sender: FDA-Public Use
  Company Number: US-MALLINCKRODT-T202001853

PATIENT

DRUGS (1)
  1. H.P. ACTHAR [Suspect]
     Active Substance: CORTICOTROPIN
     Indication: MULTIPLE SCLEROSIS
     Dosage: UNK
     Route: 065

REACTIONS (2)
  - Multiple sclerosis relapse [Unknown]
  - Drug ineffective [Unknown]
